FAERS Safety Report 10213577 (Version 1)
Quarter: 2014Q2

REPORT INFORMATION
  Report Type: Spontaneous
  Country: US (occurrence: None)
  Receive Date: 20140530
  Receipt Date: 20140530
  Transmission Date: 20141212
  Serious: Yes (Hospitalization)
  Sender: FDA-Public Use
  Company Number: AXC-2014-000337

PATIENT
  Age: 53 Year
  Sex: Female

DRUGS (9)
  1. POTASSIUM CHLORIDE [Suspect]
     Indication: PRODUCT USED FOR UNKNOWN INDICATION
  2. SIMVASTATIN (SIMVASTATIN) [Concomitant]
  3. DIGOXIN (DIGOXIN) [Concomitant]
  4. FUROSEMIDE (FUROSEMIDE) [Concomitant]
  5. CARVEDILOL (CARVEDILOL) [Concomitant]
  6. LISINORPIL (LISINOPRIL) [Concomitant]
  7. SPIRONOLACTONE (SPIRONOLACTONE) [Concomitant]
  8. INSULIN (INSULIN) [Concomitant]
  9. FERROUS SULFATE (FERROUS SULFATE) [Concomitant]

REACTIONS (8)
  - Renal failure acute [None]
  - Hyperkalaemia [None]
  - Paraesthesia [None]
  - Asthenia [None]
  - Muscular weakness [None]
  - Abasia [None]
  - Fall [None]
  - Paralysis flaccid [None]
